FAERS Safety Report 6164519-8 (Version None)
Quarter: 2009Q2

REPORT INFORMATION
  Report Type: 
  Country: None (occurrence: None)
  Receive Date: 20090421
  Receipt Date: 20090406
  Transmission Date: 20091009
  Serious: Yes (Other)
  Sender: FDA-Public Use
  Company Number: ADE2009-0561

PATIENT
  Age: 19 Month
  Sex: Male

DRUGS (11)
  1. DIDANOSINE [Suspect]
     Indication: HIV INFECTION
  2. ZIDOVUDINE [Suspect]
     Indication: HIV INFECTION
  3. STAVUDINE [Suspect]
     Indication: HIV INFECTION
  4. NEVIRAPINE [Suspect]
     Indication: HIV INFECTION
  5. LAMIVUDINE [Suspect]
     Indication: HIV INFECTION
  6. EFAVIRENZ [Suspect]
     Indication: HIV INFECTION
  7. RIFAMPICIN [Suspect]
     Indication: TUBERCULOSIS
  8. ISONIAZID [Suspect]
     Indication: TUBERCULOSIS
  9. PYRAZINAMIDE [Suspect]
     Indication: TUBERCULOSIS
  10. RITONAVIR [Suspect]
     Indication: HIV INFECTION
  11. LOPINAVIR AND RITONAVIR [Suspect]
     Indication: HIV INFECTION

REACTIONS (12)
  - DIARRHOEA [None]
  - GENERAL PHYSICAL HEALTH DETERIORATION [None]
  - GENOTYPE DRUG RESISTANCE TEST ABNORMAL [None]
  - IMMUNE SYSTEM DISORDER [None]
  - LUNG CONSOLIDATION [None]
  - LYMPHADENOPATHY [None]
  - MATERNAL DRUGS AFFECTING FOETUS [None]
  - VIRAL MUTATION IDENTIFIED [None]
  - VIROLOGIC FAILURE [None]
  - VOMITING [None]
  - WEIGHT DECREASED [None]
  - WEIGHT GAIN POOR [None]
